FAERS Safety Report 19623986 (Version 1)
Quarter: 2021Q3

REPORT INFORMATION
  Report Type: Spontaneous
  Country: FR (occurrence: FR)
  Receive Date: 20210728
  Receipt Date: 20210728
  Transmission Date: 20211014
  Serious: Yes (Hospitalization)
  Sender: FDA-Public Use
  Company Number: FR-B.I. PHARMACEUTICALS,INC./RIDGEFIELD-2021-BI-118041

PATIENT
  Age: 3 Year
  Sex: Male
  Weight: 17 kg

DRUGS (1)
  1. CATAPRESSAN [Suspect]
     Active Substance: CLONIDINE
     Indication: ASTROCYTOMA, LOW GRADE
     Dosage: 1DF1/1 TOTAL(0.1 MG/ML AU LIEU DE 0.01 MG/MLPR?PARATION MAGISTRALE
     Dates: start: 20210621, end: 20210621

REACTIONS (6)
  - Incorrect dosage administered [Recovered/Resolved]
  - Product communication issue [Recovered/Resolved]
  - Listless [Recovering/Resolving]
  - Hypotonia [Recovering/Resolving]
  - Asthenia [Recovering/Resolving]
  - Hypotension [Recovering/Resolving]

NARRATIVE: CASE EVENT DATE: 20210621
